FAERS Safety Report 9655988 (Version 1)
Quarter: 2013Q4

REPORT INFORMATION
  Report Type: Spontaneous
  Country: US (occurrence: None)
  Receive Date: 20131029
  Receipt Date: 20131029
  Transmission Date: 20140711
  Serious: Yes (Disabling)
  Sender: FDA-Public Use
  Company Number: None

PATIENT
  Age: 25 Year
  Sex: Female
  Weight: 53.98 kg

DRUGS (1)
  1. DEPO PROVERA [Suspect]
     Indication: CONTRACEPTION
     Dosage: 150MG INJECTION INTO THE MUSCLE
     Dates: start: 20110815, end: 20130408

REACTIONS (9)
  - Back pain [None]
  - Abdominal pain lower [None]
  - Dyspareunia [None]
  - Pelvic floor muscle weakness [None]
  - Atrophic vulvovaginitis [None]
  - Vulvovaginal pain [None]
  - Vaginal haemorrhage [None]
  - Urinary tract infection [None]
  - Dyspareunia [None]
